FAERS Safety Report 4694485-3 (Version None)
Quarter: 2005Q2

REPORT INFORMATION
  Report Type: 
  Country: None (occurrence: None)
  Receive Date: 20050620
  Receipt Date: 20050613
  Transmission Date: 20051028
  Serious: Yes (Disabling)
  Sender: FDA-Public Use
  Company Number: US-ROCHE-407549

PATIENT
  Age: 19 Year
  Sex: Female

DRUGS (1)
  1. ROCEPHIN [Suspect]
     Indication: INFECTION
     Route: 065
     Dates: start: 20031215, end: 20031215

REACTIONS (1)
  - TREMOR [None]
